FAERS Safety Report 11354951 (Version 1)
Quarter: 2015Q3

REPORT INFORMATION
  Report Type: Spontaneous
  Country: US (occurrence: US)
  Receive Date: 20150807
  Receipt Date: 20150807
  Transmission Date: 20151125
  Serious: No
  Sender: FDA-Public Use
  Company Number: US-JNJFOC-20150219653

PATIENT
  Age: 26 Year
  Sex: Female
  Weight: 68.04 kg

DRUGS (17)
  1. LITHIUM ASPARTATE [Concomitant]
     Active Substance: LITHIUM ASPARTATE
     Indication: PRODUCT USED FOR UNKNOWN INDICATION
     Route: 065
  2. NEURONTIN [Concomitant]
     Active Substance: GABAPENTIN
     Indication: PRODUCT USED FOR UNKNOWN INDICATION
     Route: 065
  3. THIAMINE HCL [Concomitant]
     Route: 065
  4. DIMETHYL FUMARATE [Suspect]
     Active Substance: DIMETHYL FUMARATE
     Indication: MULTIPLE SCLEROSIS
     Route: 048
     Dates: start: 201408
  5. ASCORBIC ACID. [Concomitant]
     Active Substance: ASCORBIC ACID
     Route: 065
  6. NICOTINAMIDE [Concomitant]
     Active Substance: NIACINAMIDE
     Route: 065
  7. RIBOFLAVIN [Concomitant]
     Active Substance: RIBOFLAVIN
     Route: 065
  8. TOCOPHEROL [Concomitant]
     Active Substance: TOCOPHEROL
     Route: 065
  9. PYRIDOXINE HCL [Concomitant]
     Active Substance: PYRIDOXINE HYDROCHLORIDE
     Route: 065
  10. CYANOCOBALAMIN. [Concomitant]
     Active Substance: CYANOCOBALAMIN
     Route: 065
  11. RETINOL [Concomitant]
     Active Substance: RETINOL
     Route: 065
  12. ERGOCALCIFEROL. [Concomitant]
     Active Substance: ERGOCALCIFEROL
     Route: 065
  13. RISPERDAL [Suspect]
     Active Substance: RISPERIDONE
     Indication: PRODUCT USED FOR UNKNOWN INDICATION
     Route: 048
  14. FAMPRIDINE [Suspect]
     Active Substance: DALFAMPRIDINE
     Indication: GAIT DISTURBANCE
     Route: 048
     Dates: start: 201408
  15. COLECALCIFEROL [Concomitant]
     Active Substance: CHOLECALCIFEROL
     Indication: PRODUCT USED FOR UNKNOWN INDICATION
     Route: 065
  16. FAMPRIDINE [Suspect]
     Active Substance: DALFAMPRIDINE
     Indication: MULTIPLE SCLEROSIS
     Route: 048
     Dates: start: 201408
  17. CALCIUM PANTOTHENATE [Concomitant]
     Active Substance: CALCIUM PANTOTHENATE
     Route: 065

REACTIONS (6)
  - Skin warm [Unknown]
  - Erythema [Unknown]
  - Skin irritation [Unknown]
  - Burning sensation [Unknown]
  - Bruxism [Unknown]
  - Nonspecific reaction [Unknown]

NARRATIVE: CASE EVENT DATE: 201408
